FAERS Safety Report 21383495 (Version 3)
Quarter: 2022Q4

REPORT INFORMATION
  Report Type: Report from Study
  Country: CN (occurrence: CN)
  Receive Date: 20220927
  Receipt Date: 20221014
  Transmission Date: 20230113
  Serious: Yes (Hospitalization, Other)
  Sender: FDA-Public Use
  Company Number: CN-BRISTOL-MYERS SQUIBB COMPANY-2022-110440

PATIENT
  Age: 52 Year
  Sex: Male
  Weight: 69 kg

DRUGS (6)
  1. IPILIMUMAB [Suspect]
     Active Substance: IPILIMUMAB
     Indication: Hepatocellular carcinoma
     Dosage: DOSE DELAYED?MOST RECENT DOSE OF STUDY DRUG ADMINISTRATION WAS ON  31-AUG-2022
     Route: 042
     Dates: start: 20220811
  2. IMRECOXIB [Concomitant]
     Active Substance: IMRECOXIB
     Indication: Thyroiditis
     Route: 048
     Dates: start: 20220906, end: 20220919
  3. JIU WEI ZHEN XIN [Concomitant]
     Indication: Thyroiditis
     Route: 048
     Dates: start: 20220906, end: 20220919
  4. BEIJING KEXING ZHONGWEI INACTIVATED COVID-19 VACCINE [Concomitant]
     Indication: Prophylaxis
     Route: 030
     Dates: start: 20210508
  5. COVID-19 VACCINE [Concomitant]
     Indication: Prophylaxis
     Route: 030
     Dates: start: 20211212
  6. BEIJING BIOLOGICAL COVID-19 VACCINE [Concomitant]
     Indication: Prophylaxis
     Route: 030
     Dates: start: 20210608

REACTIONS (1)
  - Pneumonia chlamydial [Not Recovered/Not Resolved]

NARRATIVE: CASE EVENT DATE: 20220921
